FAERS Safety Report 8145013-1 (Version None)
Quarter: 2012Q1

REPORT INFORMATION
  Report Type: 
  Country: None (occurrence: None)
  Receive Date: 20120217
  Receipt Date: 20120208
  Transmission Date: 20120608
  Serious: Yes (Other)
  Sender: FDA-Public Use
  Company Number: PHHY2009JP14596

PATIENT
  Sex: Male

DRUGS (6)
  1. TASIGNA [Suspect]
     Dosage: 400 MG,
     Route: 048
     Dates: start: 20090527
  2. TASIGNA [Suspect]
     Indication: CHRONIC MYELOID LEUKAEMIA
     Dosage: 800 MG,
     Route: 048
     Dates: start: 20090324, end: 20090507
  3. AMARYL [Concomitant]
     Dosage: 2 MG, UNK
     Dates: start: 20100406
  4. OMEPRAZOLE [Concomitant]
     Dosage: 20 MG, UNK
     Route: 048
     Dates: start: 20071212
  5. AMARYL [Concomitant]
     Dosage: 1 MG, UNK
     Route: 048
     Dates: start: 20071224
  6. MIGLITOL [Concomitant]
     Dosage: 150 MG, UNK
     Route: 048
     Dates: start: 20071221

REACTIONS (5)
  - PLATELET COUNT DECREASED [None]
  - GLYCOSYLATED HAEMOGLOBIN INCREASED [None]
  - HYPERGLYCAEMIA [None]
  - BLOOD BILIRUBIN INCREASED [None]
  - BILIRUBIN CONJUGATED INCREASED [None]
